FAERS Safety Report 5299964-6 (Version None)
Quarter: 2007Q2

REPORT INFORMATION
  Report Type: 
  Country: None (occurrence: None)
  Receive Date: 20070417
  Receipt Date: 20070404
  Transmission Date: 20071010
  Serious: Yes (Other)
  Sender: FDA-Public Use
  Company Number: GBWYE357404APR07

PATIENT
  Age: 65 Year
  Sex: Female

DRUGS (3)
  1. ENBREL [Suspect]
     Indication: RHEUMATOID ARTHRITIS
     Dosage: UNKNOWN
     Dates: start: 20060101
  2. HYDROXYCHLOROQUINE SULFATE [Concomitant]
     Dosage: UNKNOWN
  3. SULFASALAZINE [Concomitant]
     Dosage: UNKNOWN

REACTIONS (3)
  - FATIGUE [None]
  - PYREXIA [None]
  - SYSTEMIC LUPUS ERYTHEMATOSUS [None]
